FAERS Safety Report 21474921 (Version 1)
Quarter: 2022Q4

REPORT INFORMATION
  Report Type: Report from Study
  Country: US (occurrence: US)
  Receive Date: 20221019
  Receipt Date: 20221019
  Transmission Date: 20230112
  Serious: Yes (Other)
  Sender: FDA-Public Use
  Company Number: US-SUN PHARMACEUTICAL INDUSTRIES LTD-2022R1-359667

PATIENT
  Age: 11 Year
  Sex: Female

DRUGS (2)
  1. DECITABINE [Suspect]
     Active Substance: DECITABINE
     Indication: Myelodysplastic syndrome
     Dosage: 3 CYCLES
     Route: 065
  2. VORINOSTAT [Suspect]
     Active Substance: VORINOSTAT
     Indication: Myelodysplastic syndrome
     Dosage: 3 CYCLE
     Route: 065

REACTIONS (1)
  - Disease progression [Unknown]
